FAERS Safety Report 20874695 (Version 4)
Quarter: 2022Q4

REPORT INFORMATION
  Report Type: Report from Study
  Country: CO (occurrence: CO)
  Receive Date: 20220525
  Receipt Date: 20221227
  Transmission Date: 20230113
  Serious: Yes (Hospitalization, Other)
  Sender: FDA-Public Use
  Company Number: CO-ABBVIE-22K-036-4407443-00

PATIENT
  Age: 31 Year
  Sex: Female
  Weight: 54 kg

DRUGS (7)
  1. HUMIRA [Suspect]
     Active Substance: ADALIMUMAB
     Indication: Colitis ulcerative
     Route: 058
     Dates: start: 20160801
  2. HUMIRA [Suspect]
     Active Substance: ADALIMUMAB
  3. MESALAMINE [Concomitant]
     Active Substance: MESALAMINE
     Indication: Colitis ulcerative
     Route: 048
  4. MESALAMINE [Concomitant]
     Active Substance: MESALAMINE
     Indication: Colitis ulcerative
     Route: 048
  5. MESALAMINE [Concomitant]
     Active Substance: MESALAMINE
     Indication: Colitis ulcerative
     Route: 054
  6. AZATHIOPRINE [Concomitant]
     Active Substance: AZATHIOPRINE
     Indication: Product used for unknown indication
     Route: 048
  7. PENTASA [Concomitant]
     Active Substance: MESALAMINE
     Indication: Product used for unknown indication
     Route: 048

REACTIONS (21)
  - Anal fistula [Recovering/Resolving]
  - COVID-19 [Recovering/Resolving]
  - Anal fissure [Not Recovered/Not Resolved]
  - Drug ineffective [Not Recovered/Not Resolved]
  - Colitis ulcerative [Recovering/Resolving]
  - Rectal spasm [Recovering/Resolving]
  - Anal pruritus [Recovering/Resolving]
  - Anal abscess [Recovering/Resolving]
  - Infection [Recovering/Resolving]
  - Haemorrhage [Recovering/Resolving]
  - Malaise [Recovering/Resolving]
  - Anorectal discomfort [Recovering/Resolving]
  - Anorectal discomfort [Recovered/Resolved]
  - Immune system disorder [Recovering/Resolving]
  - Malaise [Recovered/Resolved]
  - Decreased appetite [Recovered/Resolved]
  - Anal pruritus [Recovered/Resolved]
  - COVID-19 [Recovered/Resolved with Sequelae]
  - Discomfort [Recovered/Resolved]
  - Proctalgia [Recovering/Resolving]
  - Anxiety [Recovering/Resolving]

NARRATIVE: CASE EVENT DATE: 20211001
